FAERS Safety Report 21388627 (Version 1)
Quarter: 2022Q3

REPORT INFORMATION
  Report Type: Spontaneous
  Country: FR (occurrence: FR)
  Receive Date: 20220928
  Receipt Date: 20220928
  Transmission Date: 20221026
  Serious: Yes (Hospitalization)
  Sender: FDA-Public Use
  Company Number: None

PATIENT
  Age: 51 Year
  Sex: Male
  Weight: 141 kg

DRUGS (17)
  1. XARELTO [Suspect]
     Active Substance: RIVAROXABAN
     Indication: Embolism
     Dosage: 30 MG, QD
     Route: 048
     Dates: start: 202206, end: 202207
  2. XARELTO [Suspect]
     Active Substance: RIVAROXABAN
     Indication: Embolism
     Dosage: 20 MG, QD
     Route: 048
     Dates: start: 202203, end: 202206
  3. BETAMETHASONE [Concomitant]
     Active Substance: BETAMETHASONE
  4. IVABRADINE [Concomitant]
     Active Substance: IVABRADINE
  5. PRAZEPAM [Concomitant]
     Active Substance: PRAZEPAM
     Dosage: 10 MG
  6. ENTRESTO [Concomitant]
     Active Substance: SACUBITRIL\VALSARTAN
  7. ATORVASTATIN [Concomitant]
     Active Substance: ATORVASTATIN
  8. METOCLOPRAMIDE HYDROCHLORIDE [Concomitant]
     Active Substance: METOCLOPRAMIDE HYDROCHLORIDE
  9. FUROSEMIDE [Concomitant]
     Active Substance: FUROSEMIDE
  10. SPIRONOLACTONE [Concomitant]
     Active Substance: SPIRONOLACTONE
  11. CALCIPOTRIENE [Concomitant]
     Active Substance: CALCIPOTRIENE
  12. OXYGEN [Concomitant]
     Active Substance: OXYGEN
  13. FERROUS SULFATE [Concomitant]
     Active Substance: FERROUS SULFATE
     Dosage: 80 MG
  14. INSULIN NOS [Concomitant]
     Active Substance: INSULIN NOS
  15. LIRAGLUTIDE [Concomitant]
     Active Substance: LIRAGLUTIDE
  16. HYDROCHLOROTHIAZIDE [Concomitant]
     Active Substance: HYDROCHLOROTHIAZIDE
  17. POTASSIUM CHLORIDE [Concomitant]
     Active Substance: POTASSIUM CHLORIDE

REACTIONS (5)
  - Deep vein thrombosis [Recovered/Resolved]
  - Deep vein thrombosis [Recovered/Resolved]
  - Deep vein thrombosis [Recovered/Resolved]
  - Pulmonary embolism [Recovered/Resolved]
  - Drug ineffective [Recovered/Resolved]

NARRATIVE: CASE EVENT DATE: 20220401
